FAERS Safety Report 13328638 (Version 1)
Quarter: 2017Q1

REPORT INFORMATION
  Report Type: Spontaneous
  Country: US (occurrence: US)
  Receive Date: 20170313
  Receipt Date: 20170313
  Transmission Date: 20170428
  Serious: No
  Sender: FDA-Public Use
  Company Number: US-JNJFOC-20161225239

PATIENT
  Age: 40 Year
  Sex: Female
  Weight: 102.51 kg

DRUGS (2)
  1. PEPCID COMPLETE [Suspect]
     Active Substance: CALCIUM CARBONATE\FAMOTIDINE\MAGNESIUM HYDROXIDE
     Indication: GASTROOESOPHAGEAL REFLUX DISEASE
     Dosage: MAXIMUM OF 2 PER DAY
     Route: 048
     Dates: start: 20161225, end: 20161228
  2. PEPCID COMPLETE [Suspect]
     Active Substance: CALCIUM CARBONATE\FAMOTIDINE\MAGNESIUM HYDROXIDE
     Indication: DYSPEPSIA
     Dosage: MAXIMUM OF 2 PER DAY
     Route: 048
     Dates: start: 20161225, end: 20161228

REACTIONS (2)
  - Drug ineffective [Unknown]
  - Product physical issue [Unknown]
